FAERS Safety Report 4915230-X (Version None)
Quarter: 2006Q1

REPORT INFORMATION
  Report Type: 
  Country: None (occurrence: None)
  Receive Date: 20060216
  Receipt Date: 20060216
  Transmission Date: 20060701
  Serious: Yes (Hospitalization)
  Sender: FDA-Public Use
  Company Number: None

PATIENT
  Sex: Female
  Weight: 72.5755 kg

DRUGS (3)
  1. NAPROSYN [Suspect]
     Indication: BACK PAIN
     Dosage: PO     PRIOR TO ADMISSION
     Route: 048
  2. NORVASC [Concomitant]
  3. NEXIUM [Concomitant]

REACTIONS (3)
  - DYSPHAGIA [None]
  - PRURITUS [None]
  - THROAT TIGHTNESS [None]
